FAERS Safety Report 5366419-X (Version None)
Quarter: 2007Q2

REPORT INFORMATION
  Report Type: 
  Country: None (occurrence: None)
  Receive Date: 20070622
  Receipt Date: 20070618
  Transmission Date: 20071010
  Serious: Yes (Other)
  Sender: FDA-Public Use
  Company Number: PHNU2007DE02160

PATIENT
  Sex: Male

DRUGS (1)
  1. CLOZAPINE [Suspect]
     Indication: SCHIZOPHRENIA, PARANOID TYPE
     Dosage: UNK, UNK
     Route: 048
     Dates: start: 20040101, end: 20061101

REACTIONS (4)
  - ARTHROPOD STING [None]
  - C-REACTIVE PROTEIN INCREASED [None]
  - HYPERSENSITIVITY [None]
  - LEUKOPENIA [None]
